FAERS Safety Report 16428960 (Version 2)
Quarter: 2022Q1

REPORT INFORMATION
  Report Type: Report from Study
  Country: US (occurrence: US)
  Receive Date: 20190613
  Receipt Date: 20220110
  Transmission Date: 20220424
  Serious: Yes (Life-Threatening, Hospitalization)
  Sender: FDA-Public Use
  Company Number: US-BAXTER-2019BAX011429

PATIENT
  Age: 3 Year
  Sex: Male
  Weight: 16 kg

DRUGS (7)
  1. TEMSIROLIMUS [Suspect]
     Active Substance: TEMSIROLIMUS
     Indication: Embryonal rhabdomyosarcoma
     Dosage: TOTAL DOSE ADMINISTERED THIS COURSE: 10 MG
     Route: 042
     Dates: start: 20190318, end: 20190318
  2. TEMSIROLIMUS [Suspect]
     Active Substance: TEMSIROLIMUS
     Dosage: DOSE REDUCED.
     Route: 042
  3. VINCRISTINE SULFATE [Suspect]
     Active Substance: VINCRISTINE SULFATE
     Indication: Embryonal rhabdomyosarcoma
     Dosage: OVER 1 MINUTE OR INFUSION VIA MINI BAG ON DAYS 1, 8, AND 15
     Route: 042
  4. CAMPTOSAR [Suspect]
     Active Substance: IRINOTECAN HYDROCHLORIDE
     Indication: Embryonal rhabdomyosarcoma
     Dosage: OVER 90 MINUTES ON DAYS 1-5 OF CYCLES 2 AND 4
     Route: 042
  5. DACTINOMYCIN [Suspect]
     Active Substance: DACTINOMYCIN
     Indication: Embryonal rhabdomyosarcoma
     Dosage: OVER 1-5 MINUTES ON DAY 1 OF CYCLES 1 AND 3
     Route: 042
  6. TEMOZOLOMIDE [Concomitant]
     Active Substance: TEMOZOLOMIDE
     Indication: Product used for unknown indication
     Dosage: WEEK 11
     Route: 065
     Dates: start: 20190325
  7. TEMOZOLOMIDE [Concomitant]
     Active Substance: TEMOZOLOMIDE
     Dosage: WEEK 12
     Route: 065
     Dates: start: 20190401

REACTIONS (3)
  - Large intestine perforation [Not Recovered/Not Resolved]
  - Enterocolitis infectious [Not Recovered/Not Resolved]
  - Peritonitis [Not Recovered/Not Resolved]

NARRATIVE: CASE EVENT DATE: 20190412
